FAERS Safety Report 20899018 (Version 3)
Quarter: 2022Q3

REPORT INFORMATION
  Report Type: Other
  Country: US (occurrence: US)
  Receive Date: 20220601
  Receipt Date: 20220817
  Transmission Date: 20221026
  Serious: No
  Sender: FDA-Public Use
  Company Number: US-DECIPHERA PHARMACEUTICALS LLC-2022US000423

PATIENT
  Sex: Female

DRUGS (1)
  1. QINLOCK [Suspect]
     Active Substance: RIPRETINIB
     Indication: Gastrointestinal stromal tumour
     Dosage: 150 MILLIGRAM, QD
     Route: 048
     Dates: start: 20211028

REACTIONS (9)
  - Full blood count abnormal [Recovered/Resolved]
  - Computerised tomogram abnormal [Unknown]
  - Melanocytic naevus [Unknown]
  - Abdominal distension [Unknown]
  - Flatulence [Unknown]
  - Muscle spasms [Unknown]
  - Myalgia [Unknown]
  - Constipation [Unknown]
  - Alopecia [Unknown]

NARRATIVE: CASE EVENT DATE: 20220725
